FAERS Safety Report 18302457 (Version 40)
Quarter: 2025Q4

REPORT INFORMATION
  Report Type: Report from Study
  Country: US (occurrence: US)
  Receive Date: 20200923
  Receipt Date: 20251223
  Transmission Date: 20260117
  Serious: Yes (Other)
  Sender: TAKEDA
  Company Number: US-SHIRE-US202030588

PATIENT
  Age: 56 Year
  Sex: Male

DRUGS (9)
  1. ANTIHEMOPHILIC FACTOR HUMAN [Suspect]
     Active Substance: ANTIHEMOPHILIC FACTOR HUMAN
     Indication: Haemorrhage
     Dosage: 3000 INTERNATIONAL UNIT
  2. ANTIHEMOPHILIC FACTOR HUMAN [Suspect]
     Active Substance: ANTIHEMOPHILIC FACTOR HUMAN
     Dosage: 3500 INTERNATIONAL UNIT
  3. ANTIHEMOPHILIC FACTOR HUMAN [Suspect]
     Active Substance: ANTIHEMOPHILIC FACTOR HUMAN
     Dosage: 3150 INTERNATIONAL UNIT
  4. ANTIHEMOPHILIC FACTOR HUMAN [Suspect]
     Active Substance: ANTIHEMOPHILIC FACTOR HUMAN
     Dosage: 3000 INTERNATIONAL UNIT
  5. ANTIHEMOPHILIC FACTOR HUMAN [Suspect]
     Active Substance: ANTIHEMOPHILIC FACTOR HUMAN
     Dosage: 4000 INTERNATIONAL UNIT
  6. ANTIHEMOPHILIC FACTOR HUMAN [Suspect]
     Active Substance: ANTIHEMOPHILIC FACTOR HUMAN
     Dosage: UNK
  7. ANTIHEMOPHILIC FACTOR HUMAN [Suspect]
     Active Substance: ANTIHEMOPHILIC FACTOR HUMAN
     Dosage: 3000 INTERNATIONAL UNIT
  8. ANTIHEMOPHILIC FACTOR HUMAN [Suspect]
     Active Substance: ANTIHEMOPHILIC FACTOR HUMAN
     Dosage: 4000 INTERNATIONAL UNIT
  9. CELEBREX [Suspect]
     Active Substance: CELECOXIB
     Indication: Product used for unknown indication
     Dosage: UNK

REACTIONS (31)
  - Haemarthrosis [Unknown]
  - Post procedural haemorrhage [Unknown]
  - Soft tissue haemorrhage [Unknown]
  - Haemorrhage [Unknown]
  - Thrombosis [Recovered/Resolved]
  - Joint microhaemorrhage [Unknown]
  - Blood blister [Unknown]
  - Tongue haemorrhage [Unknown]
  - Muscle haemorrhage [Recovered/Resolved]
  - Contusion [Unknown]
  - Injection site haemorrhage [Unknown]
  - Therapeutic product effect decreased [Unknown]
  - Chest injury [Unknown]
  - Limb injury [Not Recovered/Not Resolved]
  - Muscle strain [Unknown]
  - Pain in extremity [Recovered/Resolved]
  - Gait disturbance [Recovered/Resolved]
  - Peripheral swelling [Unknown]
  - Musculoskeletal stiffness [Unknown]
  - Fall [Unknown]
  - Arthralgia [Unknown]
  - Road traffic accident [Unknown]
  - Malaise [Unknown]
  - Pain [Not Recovered/Not Resolved]
  - Back injury [Not Recovered/Not Resolved]
  - Back pain [Unknown]
  - Neck pain [Not Recovered/Not Resolved]
  - Post-traumatic neck syndrome [Unknown]
  - Muscle spasms [Unknown]
  - Swelling [Not Recovered/Not Resolved]
  - Arthropathy [Unknown]

NARRATIVE: CASE EVENT DATE: 20200912
